FAERS Safety Report 13376314 (Version 1)
Quarter: 2017Q1

REPORT INFORMATION
  Report Type: Spontaneous
  Country: PT (occurrence: PT)
  Receive Date: 20170328
  Receipt Date: 20170328
  Transmission Date: 20170429
  Serious: Yes (Hospitalization, Other)
  Sender: FDA-Public Use
  Company Number: PT-ASTRAZENECA-2017SE15733

PATIENT
  Age: 67 Year
  Sex: Female
  Weight: 92.7 kg

DRUGS (13)
  1. ESTAZOLAM. [Concomitant]
     Active Substance: ESTAZOLAM
  2. DIAMICRON [Concomitant]
     Active Substance: GLICLAZIDE
     Dosage: 60
  3. RISPERIDONE. [Concomitant]
     Active Substance: RISPERIDONE
  4. COLLYRIUM [Concomitant]
  5. ETIROX [Concomitant]
  6. LISINOPRIL. [Concomitant]
     Active Substance: LISINOPRIL
     Dosage: 20
  7. SEROQUEL [Concomitant]
     Active Substance: QUETIAPINE FUMARATE
     Dosage: 200
  8. XALACOM [Concomitant]
     Active Substance: LATANOPROST\TIMOLOL MALEATE
  9. FORXIGA [Suspect]
     Active Substance: DAPAGLIFLOZIN
     Indication: OBESITY
     Route: 048
     Dates: start: 20160129
  10. EUCREAS [Concomitant]
     Active Substance: METFORMIN HYDROCHLORIDE\VILDAGLIPTIN
  11. FENOFIBRATE. [Concomitant]
     Active Substance: FENOFIBRATE
  12. FORXIGA [Suspect]
     Active Substance: DAPAGLIFLOZIN
     Indication: DIABETES MELLITUS
     Route: 048
     Dates: start: 20160129
  13. PRIADEL [Concomitant]
     Active Substance: LITHIUM CARBONATE
     Dosage: 2 X 400

REACTIONS (5)
  - Urosepsis [Recovered/Resolved]
  - Acute kidney injury [Unknown]
  - Candida infection [Recovered/Resolved]
  - Metabolic acidosis [Recovered/Resolved]
  - Escherichia urinary tract infection [Recovering/Resolving]

NARRATIVE: CASE EVENT DATE: 20170113
